FAERS Safety Report 8765740 (Version 1)
Quarter: 2012Q4

REPORT INFORMATION
  Report Type: 
  Country: US (occurrence: US)
  Receive Date: 20120904
  Receipt Date: 20120904
  Transmission Date: 20130627
  Serious: No
  Sender: FDA-Public Use
  Company Number: US-B.I. PHARMACEUTICALS,INC./RIDGEFIELD-2012-BP-21069BP

PATIENT
  Age: 67 Year
  Sex: Female

DRUGS (5)
  1. SPIRIVA [Suspect]
     Indication: EMPHYSEMA
     Dosage: 18 mcg
     Route: 055
     Dates: start: 2010
  2. SPIRIVA [Suspect]
     Route: 048
     Dates: start: 20120828, end: 20120828
  3. LITHIUM [Concomitant]
     Indication: DEPRESSION
     Dosage: 300 mg
     Route: 048
     Dates: start: 1977
  4. LEVOTHYROXINE [Concomitant]
     Indication: HYPOTHYROIDISM
     Dosage: 100 mcg
     Route: 048
     Dates: start: 2000
  5. AMITRIPTYLINE [Concomitant]
     Indication: DEPRESSION
     Dosage: 25 mg
     Route: 048
     Dates: start: 1977

REACTIONS (1)
  - Incorrect route of drug administration [Recovered/Resolved]
